FAERS Safety Report 24349175 (Version 2)
Quarter: 2025Q2

REPORT INFORMATION
  Report Type: Spontaneous
  Country: ES (occurrence: ES)
  Receive Date: 20240923
  Receipt Date: 20250506
  Transmission Date: 20250717
  Serious: Yes (Other)
  Sender: AUROBINDO
  Company Number: ES-SAMSUNG BIOEPIS-SB-2024-26651

PATIENT
  Age: 29 Year
  Sex: Female

DRUGS (2)
  1. NAPROXEN SODIUM [Suspect]
     Active Substance: NAPROXEN SODIUM
     Indication: Hidradenitis
     Dosage: 550 MILLIGRAM, TWO TIMES A DAY
     Route: 065
  2. ADALIMUMAB [Suspect]
     Active Substance: ADALIMUMAB
     Indication: Hidradenitis
     Route: 065

REACTIONS (4)
  - Seronegative arthritis [Unknown]
  - Acute phase reaction [Unknown]
  - Arthritis [Unknown]
  - Therapy partial responder [Unknown]
